FAERS Safety Report 7983092-2 (Version None)
Quarter: 2011Q4

REPORT INFORMATION
  Report Type: 
  Country: None (occurrence: None)
  Receive Date: 20111215
  Receipt Date: 20111213
  Transmission Date: 20120403
  Serious: Yes (Hospitalization)
  Sender: FDA-Public Use
  Company Number: GB-B.I. PHARMACEUTICALS,INC./RIDGEFIELD-2011-UK-01340UK

PATIENT
  Sex: Male

DRUGS (1)
  1. DABIGATRAN [Suspect]

REACTIONS (1)
  - WOUND DEHISCENCE [None]
